FAERS Safety Report 11771310 (Version 3)
Quarter: 2015Q4

REPORT INFORMATION
  Report Type: Report from Study
  Country: IT (occurrence: IT)
  Receive Date: 20151124
  Receipt Date: 20151208
  Transmission Date: 20160304
  Serious: Yes (Death, Life-Threatening, Other)
  Sender: FDA-Public Use
  Company Number: IT-009507513-1511ITA012570

PATIENT
  Age: 56 Year
  Sex: Female
  Weight: 79 kg

DRUGS (12)
  1. GABAPENTIN. [Concomitant]
     Active Substance: GABAPENTIN
     Indication: SEIZURE
  2. CALCIUM CARBONATE. [Concomitant]
     Active Substance: CALCIUM CARBONATE
     Indication: OSTEOPOROSIS
     Dosage: TOTAL DAILY DOSE:1000 MG, QD
     Route: 048
     Dates: end: 20151118
  3. METFORMIN [Concomitant]
     Active Substance: METFORMIN HYDROCHLORIDE
     Indication: DIABETES MELLITUS
     Dosage: 500 MG, TID
     Route: 048
     Dates: end: 20151118
  4. DIBASE [Concomitant]
     Active Substance: CHOLECALCIFEROL
     Indication: OSTEOPOROSIS
     Dosage: 30 IU, QW
     Route: 048
     Dates: end: 20151118
  5. CETRIZINE [Concomitant]
     Active Substance: CETIRIZINE HYDROCHLORIDE
     Indication: HYPERSENSITIVITY
     Dosage: 10 MG, QD
     Route: 048
     Dates: end: 20151118
  6. GABAPENTIN. [Concomitant]
     Active Substance: GABAPENTIN
     Indication: SEIZURE
     Dosage: 300 MG, TID
     Route: 048
     Dates: end: 20151118
  7. PANTOPRAZOLE [Concomitant]
     Active Substance: PANTOPRAZOLE SODIUM
     Indication: GASTROOESOPHAGEAL REFLUX PROPHYLAXIS
  8. CONGESCOR [Concomitant]
     Active Substance: BISOPROLOL
     Indication: HYPERTENSION
     Dosage: 5 MG, QD
     Route: 048
     Dates: end: 20151118
  9. PEMBROLIZUMAB. [Suspect]
     Active Substance: PEMBROLIZUMAB
     Indication: METASTATIC MALIGNANT MELANOMA
     Dosage: 2 MG, Q3W (DAILY DOSE ALSO REPORTED 150 MG), FREQUENCY CYCLICAL
     Route: 042
     Dates: start: 20151112
  10. PURSENNID (SENNA) [Concomitant]
     Dosage: UNK
     Route: 048
  11. PANTOPRAZOLE [Concomitant]
     Active Substance: PANTOPRAZOLE SODIUM
     Indication: PROPHYLAXIS
     Dosage: 40 MG, QD
     Route: 048
     Dates: end: 20151118
  12. PORTOLAC [Concomitant]
     Active Substance: LACTITOL
     Indication: LAXATIVE SUPPORTIVE CARE
     Dosage: STRENGTH: 66.67 G/100ML
     Route: 048
     Dates: end: 20151118

REACTIONS (10)
  - Pain [Fatal]
  - Death [Fatal]
  - Tricuspid valve prolapse [Fatal]
  - Lung infection [Not Recovered/Not Resolved]
  - Pyrexia [Fatal]
  - Peripheral ischaemia [Fatal]
  - Oxygen saturation decreased [Fatal]
  - Pyrexia [Fatal]
  - Dyspnoea at rest [Fatal]
  - Asthenia [Fatal]

NARRATIVE: CASE EVENT DATE: 20151113
